FAERS Safety Report 5227106-1 (Version None)
Quarter: 2007Q1

REPORT INFORMATION
  Report Type: 
  Country: None (occurrence: None)
  Receive Date: 20070130
  Receipt Date: 20070127
  Transmission Date: 20070707
  Serious: Yes (Hospitalization)
  Sender: FDA-Public Use
  Company Number: 232529

PATIENT
  Age: 71 Year
  Sex: Male

DRUGS (3)
  1. BEVACIZUMAB OR PLACEBO(BEVACIZUMAB) PWDR + SOLVENT, INFUSION SOLN, 100 [Suspect]
     Indication: PROSTATE CANCER METASTATIC
     Dosage: 15 MG/KG, Q3W, INTRAVENOUS
     Route: 042
     Dates: start: 20060803, end: 20061026
  2. DOCETAXEL (DOCETAXEL) [Suspect]
     Indication: PROSTATE CANCER METASTATIC
     Dosage: 75 MG/M2, INTRAVENOUS
     Route: 042
     Dates: start: 20060803, end: 20061026
  3. PREDNISONE TAB [Suspect]
     Indication: PROSTATE CANCER METASTATIC
     Dosage: 5 MG, BID, ORAL
     Route: 048
     Dates: start: 20060803, end: 20061026

REACTIONS (10)
  - AORTIC ANEURYSM [None]
  - AORTIC VALVE INCOMPETENCE [None]
  - ATRIAL FIBRILLATION [None]
  - HAEMOGLOBIN DECREASED [None]
  - MITRAL VALVE INCOMPETENCE [None]
  - NEUTROPENIA [None]
  - PULMONARY VALVE INCOMPETENCE [None]
  - RECTAL HAEMORRHAGE [None]
  - TRICUSPID VALVE INCOMPETENCE [None]
  - VENTRICULAR HYPERTROPHY [None]
